FAERS Safety Report 18520227 (Version 2)
Quarter: 2020Q4

REPORT INFORMATION
  Report Type: Spontaneous
  Country: MY (occurrence: MY)
  Receive Date: 20201119
  Receipt Date: 20201127
  Transmission Date: 20210114
  Serious: Yes (Other)
  Sender: FDA-Public Use
  Company Number: MY-SUN PHARMACEUTICAL INDUSTRIES LTD-2020R1-267614

PATIENT
  Age: 67 Year
  Sex: Male

DRUGS (4)
  1. METHYLDOPA. [Concomitant]
     Active Substance: METHYLDOPA
     Indication: PRODUCT USED FOR UNKNOWN INDICATION
     Dosage: UNK
     Route: 065
  2. AKURIT-4 [Suspect]
     Active Substance: ETHAMBUTOL HYDROCHLORIDE\ISONIAZID\PYRAZINAMIDE\RIFAMYCIN
     Indication: PULMONARY TUBERCULOSIS
     Dosage: UNK
     Route: 065
  3. HOVID HOVASC [Suspect]
     Active Substance: AMLODIPINE BESYLATE
     Indication: ESSENTIAL HYPERTENSION
     Dosage: 10 MILLIGRAM, DAILY
     Route: 065
  4. MPI [PYRIDOXINE] [Suspect]
     Active Substance: PYRIDOXINE
     Indication: PULMONARY TUBERCULOSIS
     Dosage: 10 MILLIGRAM, DAILY
     Route: 065

REACTIONS (2)
  - Hypertension [Unknown]
  - Drug interaction [Unknown]
